FAERS Safety Report 7343062-4 (Version None)
Quarter: 2011Q1

REPORT INFORMATION
  Report Type: 
  Country: None (occurrence: None)
  Receive Date: 20110310
  Receipt Date: 20110303
  Transmission Date: 20110831
  Serious: Yes (Death, Other)
  Sender: FDA-Public Use
  Company Number: IT-GENZYME-FLUD-1000850

PATIENT

DRUGS (7)
  1. FLUDARA [Suspect]
     Indication: ACUTE MYELOID LEUKAEMIA
     Dosage: 30 MG/M2, QD
     Route: 042
  2. CYTARABINE [Suspect]
     Indication: ACUTE MYELOID LEUKAEMIA
     Dosage: 100 MG/M2, ON DAYS 1 THROUGH 7
     Route: 042
  3. NEUPOGEN [Suspect]
     Indication: ACUTE MYELOID LEUKAEMIA
     Dosage: 300 MCG, FROM DAY 1 UNTIL CR
  4. CYTARABINE [Suspect]
     Dosage: 2 G/M2, DAYS 1 THROUGH 5
     Route: 065
  5. ETOPOSIDE [Suspect]
     Indication: ACUTE MYELOID LEUKAEMIA
     Dosage: 100 MG/M2, ON DAYS 1 THROUGH 4
     Route: 065
  6. FLUDARA [Suspect]
  7. IDARUBICIN [Suspect]
     Indication: ACUTE MYELOID LEUKAEMIA
     Dosage: 10 MG/M2, ON DAYS 1, 3, AND 5
     Route: 065

REACTIONS (11)
  - NEOPLASM MALIGNANT [None]
  - DIARRHOEA [None]
  - STOMATITIS [None]
  - PANCYTOPENIA [None]
  - INFECTION [None]
  - GRAFT VERSUS HOST DISEASE [None]
  - NEUTROPENIA [None]
  - BRONCHOPULMONARY ASPERGILLOSIS [None]
  - BACTERIAL INFECTION [None]
  - HEPATIC ENZYME INCREASED [None]
  - PYREXIA [None]
